FAERS Safety Report 16203525 (Version 1)
Quarter: 2019Q2

REPORT INFORMATION
  Report Type: Spontaneous
  Country: DE (occurrence: DE)
  Receive Date: 20190416
  Receipt Date: 20190416
  Transmission Date: 20190711
  Serious: Yes (Other)
  Sender: FDA-Public Use
  Company Number: DE-MYLANLABS-2019M1035840

PATIENT
  Age: 68 Year
  Sex: Male
  Weight: 67 kg

DRUGS (7)
  1. ABACAVIR. [Suspect]
     Active Substance: ABACAVIR
     Indication: HIV INFECTION
     Dosage: 600 MILLIGRAM, QD,DOSAGE FORM: UNSPECIFIED
     Route: 065
     Dates: start: 20150108
  2. COPEGUS [Suspect]
     Active Substance: RIBAVIRIN
     Indication: CHRONIC HEPATITIS C
     Dosage: 1000 MILLIGRAM, QD,DOSAGE FORM: UNSPECIFIED
     Route: 048
     Dates: start: 20150108, end: 20150406
  3. EDURANT [Suspect]
     Active Substance: RILPIVIRINE HYDROCHLORIDE
     Indication: HIV INFECTION
     Dosage: 25 MILLIGRAM, QD
     Route: 048
     Dates: start: 20150108
  4. HARVONI [Suspect]
     Active Substance: LEDIPASVIR\SOFOSBUVIR
     Indication: CHRONIC HEPATITIS C
     Dosage: DOSAGE FORM: UNSPECIFIED
     Route: 048
     Dates: start: 20150108, end: 20150401
  5. BISOPROLOL [Concomitant]
     Active Substance: BISOPROLOL
     Dosage: UNK,DOSAGE FORM: UNSPECIFIED
     Route: 065
     Dates: start: 20150107
  6. BISOPROLOL [Concomitant]
     Active Substance: BISOPROLOL
     Dosage: 5 MILLIGRAM, PRN,DOSAGE FORM: UNSPECIFIED
     Route: 065
     Dates: start: 20061101
  7. LAMIVUDINE. [Suspect]
     Active Substance: LAMIVUDINE
     Indication: HIV INFECTION
     Dosage: 300 MILLIGRAM, QD,DOSAGE FORM: UNSPECIFIED
     Route: 065
     Dates: start: 20150108

REACTIONS (1)
  - Pancreatic failure [Recovered/Resolved]

NARRATIVE: CASE EVENT DATE: 20150203
